FAERS Safety Report 7348865-8 (Version None)
Quarter: 2011Q1

REPORT INFORMATION
  Report Type: 
  Country: None (occurrence: None)
  Receive Date: 20110225
  Receipt Date: 20110214
  Transmission Date: 20110831
  Serious: Yes (Other)
  Sender: FDA-Public Use
  Company Number: 320034

PATIENT
  Age: 72 Year
  Sex: Female
  Weight: 77.1 kg

DRUGS (5)
  1. JANUVIA [Suspect]
     Indication: TYPE 2 DIABETES MELLITUS
     Dates: start: 20100301, end: 20101109
  2. QUINAPRIL HCL [Concomitant]
  3. DIOVAN [Concomitant]
  4. VICTOZA [Suspect]
     Indication: TYPE 2 DIABETES MELLITUS
     Dosage: SUBCUTANEOUS
     Route: 058
     Dates: start: 20101029, end: 20101109
  5. LANTUS /01483501/ (INSULIN GLARGINE) [Concomitant]

REACTIONS (4)
  - PANCREATITIS [None]
  - CONSTIPATION [None]
  - ASTHENIA [None]
  - HYPERHIDROSIS [None]
